FAERS Safety Report 13570457 (Version 1)
Quarter: 2017Q2

REPORT INFORMATION
  Report Type: Spontaneous
  Country: CH (occurrence: CH)
  Receive Date: 20170522
  Receipt Date: 20170522
  Transmission Date: 20170830
  Serious: Yes (Hospitalization, Disabling)
  Sender: FDA-Public Use
  Company Number: CH-ASTRAZENECA-2017SE52459

PATIENT
  Age: 68 Year
  Sex: Male

DRUGS (11)
  1. TRESIBA [Concomitant]
     Active Substance: INSULIN DEGLUDEC
  2. INEGY [Concomitant]
     Active Substance: EZETIMIBE\SIMVASTATIN
  3. VOLTAREN [Suspect]
     Active Substance: DICLOFENAC SODIUM
     Route: 048
     Dates: start: 20170428, end: 20170430
  4. PREDNISONE. [Suspect]
     Active Substance: PREDNISONE
     Route: 048
     Dates: start: 20170417, end: 20170501
  5. NOVORAPID [Concomitant]
     Active Substance: INSULIN ASPART
     Dosage: THREE TIMES A DAY
  6. NEBILET [Concomitant]
     Active Substance: NEBIVOLOL
  7. NEXIUM [Suspect]
     Active Substance: ESOMEPRAZOLE MAGNESIUM
     Route: 048
     Dates: start: 20170417, end: 20170501
  8. MESTINON [Concomitant]
     Active Substance: PYRIDOSTIGMINE BROMIDE
     Dates: start: 201607, end: 20170501
  9. VASCORD [Concomitant]
  10. ASPIRIN CARDIO [Concomitant]
     Active Substance: ASPIRIN
  11. IMUREK [Suspect]
     Active Substance: AZATHIOPRINE
     Route: 048
     Dates: start: 20170417, end: 20170501

REACTIONS (9)
  - Dysphonia [Recovering/Resolving]
  - Pyrexia [Recovering/Resolving]
  - Rash generalised [Recovering/Resolving]
  - Asthenia [Recovering/Resolving]
  - Dysphagia [Recovering/Resolving]
  - Intestinal transit time decreased [Recovering/Resolving]
  - Arthralgia [Recovering/Resolving]
  - Liver injury [Recovering/Resolving]
  - Rhinitis [Recovering/Resolving]

NARRATIVE: CASE EVENT DATE: 20170420
